FAERS Safety Report 7568285-0 (Version None)
Quarter: 2011Q2

REPORT INFORMATION
  Report Type: 
  Country: None (occurrence: None)
  Receive Date: 20110623
  Receipt Date: 20110616
  Transmission Date: 20111010
  Serious: Yes (Hospitalization)
  Sender: FDA-Public Use
  Company Number: FR-ROCHE-774625

PATIENT
  Sex: Female
  Weight: 46 kg

DRUGS (5)
  1. DACTINOMYCIN [Suspect]
     Indication: SARCOMA
     Dosage: LAST DOSE PRIOR TO SAE: 02 JUN 2011, FORM REPORTED AS 1.5MG/M^2
     Route: 042
     Dates: start: 20110415
  2. DOXORUBICIN HCL [Suspect]
     Indication: SARCOMA
     Dosage: LAST DOSE PRIOR TO SAE: 03 JUNE 2011, FORM REPORTED AS 60MG/M^2
     Route: 042
     Dates: start: 20110415
  3. VINCRISTINE [Suspect]
     Indication: SARCOMA
     Dosage: LAST DOSE PRIOR TO SAE: 02 JUNE 2011, FORM REPORTED AS 1.5MG/M^2
     Route: 042
     Dates: start: 20110415
  4. BEVACIZUMAB [Suspect]
     Indication: SARCOMA
     Dosage: LAST DOSE PRIOR TO SAE: 02 JUN 2011, FORM REPORTED AS 7.5MG/KG
     Route: 042
     Dates: start: 20110415
  5. IFOSFAMIDE [Suspect]
     Indication: SARCOMA
     Dosage: LAST DOSE PRIOR TO SAE: 03 JUN 2011, FORM REPORTED AS 6G/M^2
     Route: 042
     Dates: start: 20110415

REACTIONS (1)
  - FEBRILE BONE MARROW APLASIA [None]
